FAERS Safety Report 11418148 (Version 2)
Quarter: 2018Q3

REPORT INFORMATION
  Report Type: Report from Study
  Country: US (occurrence: US)
  Receive Date: 20150825
  Receipt Date: 20180812
  Transmission Date: 20181010
  Serious: Yes (Other)
  Sender: FDA-Public Use
  Company Number: US-BRISTOL-MYERS SQUIBB COMPANY-BMS-2015-054194

PATIENT
  Sex: Female
  Weight: 73 kg

DRUGS (1)
  1. ABATACEPT [Suspect]
     Active Substance: ABATACEPT
     Indication: RHEUMATOID ARTHRITIS
     Dosage: UNK
     Route: 058
     Dates: start: 20150624

REACTIONS (7)
  - Pulmonary mass [Unknown]
  - Oropharyngeal pain [Unknown]
  - Benign neoplasm of thyroid gland [Unknown]
  - Upper respiratory tract infection [Unknown]
  - Migraine [Unknown]
  - Breast mass [Unknown]
  - Breast pain [Unknown]
